FAERS Safety Report 5482979-2 (Version None)
Quarter: 2007Q4

REPORT INFORMATION
  Report Type: 
  Country: None (occurrence: None)
  Receive Date: 20071011
  Receipt Date: 20071006
  Transmission Date: 20080405
  Serious: Yes (Hospitalization)
  Sender: FDA-Public Use
  Company Number: US-BOEHRINGER INGELHEIM PHARMACEUTICALS, INC.-2007-BP-22423PF

PATIENT
  Sex: Female

DRUGS (2)
  1. SPIRIVA [Suspect]
     Route: 055
     Dates: start: 20070101
  2. CHANTIX [Suspect]
     Indication: EX-SMOKER
     Dates: end: 20070926

REACTIONS (7)
  - FATIGUE [None]
  - FEELING ABNORMAL [None]
  - HEADACHE [None]
  - NAUSEA [None]
  - ORAL PAIN [None]
  - STOMACH DISCOMFORT [None]
  - TACHYCARDIA [None]
